FAERS Safety Report 13186504 (Version 1)
Quarter: 2017Q1

REPORT INFORMATION
  Report Type: Spontaneous
  Country: IT (occurrence: IT)
  Receive Date: 20170205
  Receipt Date: 20170205
  Transmission Date: 20170428
  Serious: Yes (Other)
  Sender: FDA-Public Use
  Company Number: IT-UCBSA-2017004263

PATIENT
  Age: 17 Year
  Sex: Male
  Weight: 84 kg

DRUGS (2)
  1. RISPERDAL [Suspect]
     Active Substance: RISPERIDONE
     Indication: ABNORMAL BEHAVIOUR
     Dosage: 1 MG, ONCE DAILY (QD)
     Route: 048
     Dates: start: 20101125, end: 20161208
  2. METHYLPHENIDATE HYDROCHLORIDE. [Suspect]
     Active Substance: METHYLPHENIDATE HYDROCHLORIDE
     Indication: ATTENTION DEFICIT/HYPERACTIVITY DISORDER
     Dosage: 30 MG, ONCE DAILY (QD)
     Route: 048
     Dates: start: 20140429, end: 20161208

REACTIONS (3)
  - Tachycardia [Unknown]
  - Presyncope [Unknown]
  - Vertigo [Unknown]

NARRATIVE: CASE EVENT DATE: 20161108
